FAERS Safety Report 5014078-8 (Version None)
Quarter: 2006Q2

REPORT INFORMATION
  Report Type: 
  Country: None (occurrence: None)
  Receive Date: 20060525
  Receipt Date: 20060503
  Transmission Date: 20061013
  Serious: Yes (Other)
  Sender: FDA-Public Use
  Company Number: MX200605001001

PATIENT
  Age: 78 Year
  Sex: Female
  Weight: 68 kg

DRUGS (9)
  1. FORTEO (TERIPARATIDE UNKNOWN MANUFACTURER) [Suspect]
     Dosage: 20 UG DAILY (1/D) SUBCUTANEOUS
     Route: 058
     Dates: start: 20050801
  2. FORTEON PEN [Concomitant]
  3. POSTURE D (CALCIUM PHOSPHATE, COLECALCIFEROL, ERGOCALCIFEROL) [Concomitant]
  4. ALFA D (ALFACALCIDOL) [Concomitant]
  5. CENTRUM SILVER (ASCORBIC ACID, CALCIUM, MINERALS NOS, RETINOL, TOCOPHE [Concomitant]
  6. EUTIROX (LEVOTHYROXINE) [Concomitant]
  7. ACTONEL /USA/ (RISEDRONATE SODIUM) [Concomitant]
  8. RAMIPRIL [Concomitant]
  9. ALZAM (ALPRAZOLAM) [Concomitant]

REACTIONS (2)
  - FEMORAL NECK FRACTURE [None]
  - MULTIPLE MYELOMA [None]
